FAERS Safety Report 23734604 (Version 1)
Quarter: 2024Q2

REPORT INFORMATION
  Report Type: Report from Study
  Country: US (occurrence: US)
  Receive Date: 20240412
  Receipt Date: 20240412
  Transmission Date: 20240715
  Serious: No
  Sender: FDA-Public Use
  Company Number: US-AstraZeneca-CH-00600055A

PATIENT
  Sex: Female

DRUGS (1)
  1. SOLIRIS [Suspect]
     Active Substance: ECULIZUMAB
     Indication: Product used for unknown indication
     Dosage: UNK UNK, Q2W
     Route: 065

REACTIONS (4)
  - Back pain [Unknown]
  - Gait inability [Unknown]
  - Chest discomfort [Unknown]
  - Memory impairment [Unknown]
